FAERS Safety Report 4341944-9 (Version None)
Quarter: 2004Q2

REPORT INFORMATION
  Report Type: 
  Country: None (occurrence: None)
  Receive Date: 20040415
  Receipt Date: 20040326
  Transmission Date: 20050107
  Serious: Yes (Hospitalization)
  Sender: FDA-Public Use
  Company Number: FR_040303804

PATIENT
  Age: 72 Year
  Sex: Male

DRUGS (1)
  1. CELANCE (PERGOLIDE MESYLATE) [Suspect]
     Indication: PARKINSON'S DISEASE
     Dates: start: 20020601, end: 20030301

REACTIONS (2)
  - FALL [None]
  - HAEMOTHORAX [None]
